FAERS Safety Report 13296746 (Version 1)
Quarter: 2017Q1

REPORT INFORMATION
  Report Type: Spontaneous
  Country: US (occurrence: US)
  Receive Date: 20170306
  Receipt Date: 20170306
  Transmission Date: 20170428
  Serious: Yes (Hospitalization, Other)
  Sender: FDA-Public Use
  Company Number: US-ACADIA PHARMACEUTICALS INC.-ACA-2017-002387

PATIENT
  Age: 74 Year
  Sex: Male

DRUGS (8)
  1. NORTHERA [Suspect]
     Active Substance: DROXIDOPA
     Dosage: 100 MG, Q PM
     Route: 048
     Dates: start: 2014
  2. NORTHERA [Suspect]
     Active Substance: DROXIDOPA
     Dosage: UNK
     Dates: start: 2014
  3. CYMBALTA [Suspect]
     Active Substance: DULOXETINE HYDROCHLORIDE
     Indication: PRODUCT USED FOR UNKNOWN INDICATION
     Dosage: UNK
     Dates: end: 201701
  4. NORTHERA [Suspect]
     Active Substance: DROXIDOPA
     Indication: ORTHOSTATIC HYPOTENSION
     Dosage: 100 MG, Q AM
     Route: 048
     Dates: start: 20140922
  5. CELEBREX [Concomitant]
     Active Substance: CELECOXIB
     Indication: PRODUCT USED FOR UNKNOWN INDICATION
     Dosage: UNK
  6. NUPLAZID [Suspect]
     Active Substance: PIMAVANSERIN TARTRATE
     Indication: PRODUCT USED FOR UNKNOWN INDICATION
     Dosage: UNK
     Route: 048
     Dates: start: 20170201
  7. SEROQUEL [Suspect]
     Active Substance: QUETIAPINE FUMARATE
     Indication: PRODUCT USED FOR UNKNOWN INDICATION
     Dosage: 25 MG, UNK
     Dates: start: 201702
  8. NORTHERA [Suspect]
     Active Substance: DROXIDOPA
     Dosage: 200 MG, NOON
     Route: 048
     Dates: start: 2014

REACTIONS (7)
  - Fall [Unknown]
  - Paranoia [Unknown]
  - Confusional state [Unknown]
  - Mental disorder [Unknown]
  - Loss of consciousness [Unknown]
  - Hallucination [Recovering/Resolving]
  - Nightmare [Unknown]

NARRATIVE: CASE EVENT DATE: 201702
